FAERS Safety Report 20674874 (Version 1)
Quarter: 2022Q2

REPORT INFORMATION
  Report Type: Spontaneous
  Country: US (occurrence: None)
  Receive Date: 20220404
  Receipt Date: 20220404
  Transmission Date: 20220721
  Serious: Yes (Other)
  Sender: FDA-Public Use
  Company Number: None

PATIENT
  Age: 35 Year
  Sex: Male

DRUGS (1)
  1. ROGAINE [Suspect]
     Active Substance: MINOXIDIL

REACTIONS (4)
  - Skin irritation [None]
  - Skin fissures [None]
  - Periorbital swelling [None]
  - Skin injury [None]

NARRATIVE: CASE EVENT DATE: 20211120
